FAERS Safety Report 19207954 (Version 1)
Quarter: 2021Q2

REPORT INFORMATION
  Report Type: Spontaneous
  Country: US (occurrence: US)
  Receive Date: 20210503
  Receipt Date: 20210503
  Transmission Date: 20210717
  Serious: Yes (Hospitalization, Other)
  Sender: FDA-Public Use
  Company Number: US-ABBVIE-21K-163-3811588-00

PATIENT
  Age: 62 Year
  Sex: Male
  Weight: 69.01 kg

DRUGS (11)
  1. CREON [Suspect]
     Active Substance: PANCRELIPASE AMYLASE\PANCRELIPASE LIPASE\PANCRELIPASE PROTEASE
     Indication: PANCREATIC FAILURE
     Route: 048
  2. DIPHENOXYLATE/ATROPINE [Suspect]
     Active Substance: ATROPINE\DIPHENOXYLATE
     Route: 048
     Dates: start: 20210324
  3. SERTRALINE [Concomitant]
     Active Substance: SERTRALINE HYDROCHLORIDE
     Indication: DEPRESSION
  4. LEVOTHYROXINE. [Concomitant]
     Active Substance: LEVOTHYROXINE
     Indication: HYPOTHYROIDISM
  5. DIPHENOXYLATE/ATROPINE [Suspect]
     Active Substance: ATROPINE\DIPHENOXYLATE
     Indication: PRODUCT USED FOR UNKNOWN INDICATION
     Route: 048
     Dates: start: 20210223, end: 20210323
  6. COVID 19 VACCCINE [Concomitant]
     Indication: COVID-19 IMMUNISATION
     Route: 030
     Dates: start: 20210118, end: 20210118
  7. COVID 19 VACCCINE [Concomitant]
     Route: 030
     Dates: start: 20210208, end: 20210208
  8. ROPINIROLE. [Concomitant]
     Active Substance: ROPINIROLE
     Indication: RESTLESS LEGS SYNDROME
  9. PEPTIDES [Concomitant]
     Indication: ENTERAL NUTRITION
  10. OSMOLITE [Concomitant]
     Indication: ENTERAL NUTRITION
  11. MIRTAZAPINE. [Concomitant]
     Active Substance: MIRTAZAPINE
     Indication: SLEEP DISORDER

REACTIONS (10)
  - Intentional product misuse [Recovered/Resolved]
  - Flatulence [Unknown]
  - Drug ineffective [Not Recovered/Not Resolved]
  - Hypothyroidism [Recovered/Resolved]
  - Weight increased [Recovering/Resolving]
  - Malabsorption [Unknown]
  - Hyperthyroidism [Unknown]
  - Ultrasound thyroid abnormal [Unknown]
  - Weight decreased [Recovered/Resolved]
  - Vitamin D decreased [Unknown]

NARRATIVE: CASE EVENT DATE: 20201111
